FAERS Safety Report 22072343 (Version 1)
Quarter: 2023Q1

REPORT INFORMATION
  Report Type: Report from Study
  Country: AU (occurrence: AU)
  Receive Date: 20230308
  Receipt Date: 20230308
  Transmission Date: 20230417
  Serious: Yes (Hospitalization)
  Sender: FDA-Public Use
  Company Number: AU-NOVOPROD-1034217

PATIENT
  Age: 71 Year
  Sex: Female
  Weight: 86 kg

DRUGS (2)
  1. SEMAGLUTIDE [Suspect]
     Active Substance: SEMAGLUTIDE
     Indication: Non-alcoholic steatohepatitis
     Dosage: 2.4 MG, QW
     Route: 058
     Dates: start: 20220325
  2. NNC0194-0499 [Suspect]
     Active Substance: NNC0194-0499
     Indication: Non-alcoholic steatohepatitis
     Dosage: 7.5 MG, QW
     Route: 058
     Dates: start: 20220325

REACTIONS (1)
  - Abdominal pain [Not Recovered/Not Resolved]

NARRATIVE: CASE EVENT DATE: 20230302
